FAERS Safety Report 9836232 (Version 3)
Quarter: 2014Q2

REPORT INFORMATION
  Report Type: Spontaneous
  Country: IE (occurrence: IE)
  Receive Date: 20140123
  Receipt Date: 20140402
  Transmission Date: 20141212
  Serious: Yes (Other)
  Sender: FDA-Public Use
  Company Number: IE-ROCHE-1335919

PATIENT
  Age: 47 Year
  Sex: Female
  Weight: 120 kg

DRUGS (8)
  1. XOLAIR [Suspect]
     Indication: CHRONIC SPONTANEOUS URTICARIA
     Route: 058
     Dates: start: 20130710
  2. XOLAIR [Suspect]
     Route: 058
  3. XOLAIR [Suspect]
     Route: 058
     Dates: start: 20130920, end: 20130920
  4. TELFAST [Concomitant]
  5. XYZAL [Concomitant]
  6. ESOMEPRAZOLE [Concomitant]
  7. PREDNISOLONE [Concomitant]
  8. CALCICHEW D3 [Concomitant]

REACTIONS (3)
  - Hypokinesia [Recovered/Resolved]
  - Drug specific antibody present [Not Recovered/Not Resolved]
  - Off label use [Unknown]
